FAERS Safety Report 8583844 (Version 2)
Quarter: 2013Q3

REPORT INFORMATION
  Report Type: Spontaneous
  Country: US (occurrence: US)
  Receive Date: 20120529
  Receipt Date: 20130718
  Transmission Date: 20140515
  Serious: Yes (Hospitalization, Other)
  Sender: FDA-Public Use
  Company Number: US-ROCHE-1070295

PATIENT
  Age: 73 Year
  Sex: Female

DRUGS (7)
  1. BONIVA [Suspect]
     Indication: OSTEOPOROSIS
     Route: 048
     Dates: start: 20050912
  2. BONIVA [Suspect]
     Route: 048
     Dates: start: 20070501
  3. BONIVA [Suspect]
     Route: 048
     Dates: start: 20080501
  4. BONIVA [Suspect]
     Route: 048
     Dates: start: 20090604
  5. ACTONEL [Suspect]
     Indication: OSTEOPOROSIS
     Route: 065
     Dates: start: 2002
  6. ACTONEL [Suspect]
     Route: 065
     Dates: start: 20030503
  7. ACTONEL [Suspect]
     Route: 065
     Dates: end: 20050912

REACTIONS (4)
  - Femur fracture [Unknown]
  - Bone disorder [Unknown]
  - Low turnover osteopathy [Unknown]
  - Anxiety [Unknown]
